FAERS Safety Report 17085574 (Version 1)
Quarter: 2019Q4

REPORT INFORMATION
  Report Type: Spontaneous
  Country: US (occurrence: US)
  Receive Date: 20191031
  Receipt Date: 20191031
  Transmission Date: 20200122
  Serious: No
  Sender: FDA-Public Use
  Company Number: None

PATIENT
  Age: 66 Year
  Sex: Female
  Weight: 70.31 kg

DRUGS (1)
  1. ITIIRES ORAL DROPS [Suspect]
     Active Substance: HOMEOPATHICS
     Indication: IMMUNE SYSTEM DISORDER

REACTIONS (6)
  - Insomnia [None]
  - Irritability [None]
  - Confusional state [None]
  - Anxiety [None]
  - Agitation [None]
  - Euphoric mood [None]

NARRATIVE: CASE EVENT DATE: 20190828
